FAERS Safety Report 7547015-2 (Version None)
Quarter: 2011Q2

REPORT INFORMATION
  Report Type: 
  Country: None (occurrence: None)
  Receive Date: 20110614
  Receipt Date: 20110603
  Transmission Date: 20111010
  Serious: No
  Sender: FDA-Public Use
  Company Number: US-BAYER-2011-029814

PATIENT
  Age: 24 Year
  Sex: Female
  Weight: 40.363 kg

DRUGS (1)
  1. MIRENA [Suspect]
     Indication: CONTRACEPTION
     Dosage: 20 ?G, CONT
     Route: 015
     Dates: start: 20090731, end: 20110305

REACTIONS (4)
  - DEVICE EXPULSION [None]
  - DEVICE DISLOCATION [None]
  - VAGINAL HAEMORRHAGE [None]
  - PREGNANCY WITH CONTRACEPTIVE DEVICE [None]
